FAERS Safety Report 21062185 (Version 2)
Quarter: 2022Q4

REPORT INFORMATION
  Report Type: Spontaneous
  Country: US (occurrence: US)
  Receive Date: 20220711
  Receipt Date: 20221011
  Transmission Date: 20230112
  Serious: Yes (Hospitalization)
  Sender: FDA-Public Use
  Company Number: US-CTI BIOPHARMA-2022US02905

PATIENT

DRUGS (2)
  1. VONJO [Suspect]
     Active Substance: PACRITINIB
     Indication: Myelofibrosis
     Dosage: 100 MILLIGRAM, BID
     Route: 048
     Dates: start: 20220615
  2. VONJO [Suspect]
     Active Substance: PACRITINIB
     Dosage: 100 MG, BID
     Route: 048
     Dates: start: 20220904

REACTIONS (11)
  - Neutropenia [Unknown]
  - Decreased appetite [Unknown]
  - Pyrexia [Unknown]
  - Disorientation [Unknown]
  - Fatigue [Unknown]
  - Nausea [Unknown]
  - Diarrhoea [Unknown]
  - Urinary incontinence [Unknown]
  - Serum ferritin increased [Unknown]
  - Platelet count increased [Unknown]
  - Transfusion [Unknown]
